FAERS Safety Report 10159580 (Version 2)
Quarter: 2014Q2

REPORT INFORMATION
  Report Type: Report from Study
  Country: US (occurrence: US)
  Receive Date: 20140508
  Receipt Date: 20140508
  Transmission Date: 20141212
  Serious: Yes (Other)
  Sender: FDA-Public Use
  Company Number: PHEH2013US016909

PATIENT
  Age: 36 Year
  Sex: Female

DRUGS (14)
  1. GILENYA [Suspect]
     Indication: MULTIPLE SCLEROSIS
     Dosage: 0.5 MG, QD
     Route: 048
     Dates: start: 20130502, end: 20140407
  2. ZOFRAN [Concomitant]
  3. EPIDUO [Concomitant]
  4. PROPRANOLOL [Concomitant]
  5. AMITRIPTYLINE [Concomitant]
  6. DOXYCYCLINE [Concomitant]
  7. MAGNESIUM OXIDE [Concomitant]
  8. CHLOORDIAZEPOXIDE [Concomitant]
  9. VITAMIN D3 [Concomitant]
  10. PROTONIX [Concomitant]
  11. ERYPED [Concomitant]
  12. TRAMADOL [Concomitant]
  13. PROMETHAZINE [Concomitant]
  14. CLOBETASOL [Concomitant]

REACTIONS (2)
  - Central nervous system lesion [Unknown]
  - White blood cell count decreased [Unknown]
